FAERS Safety Report 4321638-6 (Version None)
Quarter: 2004Q1

REPORT INFORMATION
  Report Type: 
  Country: None (occurrence: None)
  Receive Date: 20040322
  Receipt Date: 20030903
  Transmission Date: 20041129
  Serious: No
  Sender: FDA-Public Use
  Company Number: US-BRISTOL-MYERS SQUIBB COMPANY-12378998

PATIENT
  Age: 35 Year
  Sex: Female

DRUGS (1)
  1. MONISTAT [Suspect]
     Indication: VAGINAL MYCOSIS
     Route: 067
     Dates: start: 20030828, end: 20030828

REACTIONS (5)
  - GENITAL PRURITUS FEMALE [None]
  - PRURITUS GENERALISED [None]
  - RASH [None]
  - VAGINAL BURNING SENSATION [None]
  - VAGINAL ERYTHEMA [None]
